FAERS Safety Report 9675581 (Version 1)
Quarter: 2013Q4

REPORT INFORMATION
  Report Type: Spontaneous
  Country: CN (occurrence: CN)
  Receive Date: 20131107
  Receipt Date: 20131107
  Transmission Date: 20140711
  Serious: Yes (Hospitalization, Other)
  Sender: FDA-Public Use
  Company Number: CN-PFIZER INC-2013310826

PATIENT
  Age: 44 Year
  Sex: Male

DRUGS (4)
  1. SOLU-MEDROL [Suspect]
     Dosage: 80 MG, ONCE DAILY
     Route: 041
     Dates: start: 20110324, end: 20110326
  2. SOLU-MEDROL [Suspect]
     Dosage: 80 MG, ONCE DAILY
     Route: 041
     Dates: start: 20110328, end: 20110402
  3. GENTAMYCIN [Concomitant]
     Dosage: 80000 U, TWICE DAILY
     Dates: start: 20110324, end: 20110326
  4. DEXAMETHASONE [Concomitant]
     Dosage: 2 MG, TWICE DAILY
     Dates: start: 20110324, end: 20110326

REACTIONS (13)
  - Osteonecrosis [Not Recovered/Not Resolved]
  - Myofascitis [Unknown]
  - Fall [Recovered/Resolved]
  - Hyperlipidaemia [Unknown]
  - Hyponatraemia [Unknown]
  - Scar [Unknown]
  - Pain in extremity [Recovering/Resolving]
  - Local swelling [Recovering/Resolving]
  - Red blood cell sedimentation rate increased [Unknown]
  - Neuropathy peripheral [Unknown]
  - Wound complication [Recovering/Resolving]
  - Feeling abnormal [Unknown]
  - Mobility decreased [Unknown]
